FAERS Safety Report 9838468 (Version 3)
Quarter: 2015Q3

REPORT INFORMATION
  Report Type: Report from Study
  Country: US (occurrence: US)
  Receive Date: 20140123
  Receipt Date: 20150828
  Transmission Date: 20151125
  Serious: Yes (Hospitalization)
  Sender: FDA-Public Use
  Company Number: US-ASTELLAS-2013US004726

PATIENT
  Sex: Male

DRUGS (3)
  1. AVASTIN [Suspect]
     Active Substance: BEVACIZUMAB
     Indication: MALIGNANT URINARY TRACT NEOPLASM
     Dosage: 105 MG, EVERY 14 DAYS
     Route: 065
     Dates: start: 20050623
  2. ERLOTINIB [Suspect]
     Active Substance: ERLOTINIB
     Indication: RENAL CANCER
     Route: 048
  3. ERLOTINIB [Suspect]
     Active Substance: ERLOTINIB
     Indication: MALIGNANT URINARY TRACT NEOPLASM

REACTIONS (4)
  - Rash [Unknown]
  - Abdominal mass [Unknown]
  - Off label use [Unknown]
  - Pancreatic mass [Unknown]
